FAERS Safety Report 24595024 (Version 1)
Quarter: 2024Q4

REPORT INFORMATION
  Report Type: Spontaneous
  Country: EU (occurrence: EU)
  Receive Date: 20241108
  Receipt Date: 20241108
  Transmission Date: 20250115
  Serious: Yes (Hospitalization)
  Sender: BAUSCH AND LOMB
  Company Number: None

PATIENT
  Age: 79 Year
  Sex: Female
  Weight: 60 kg

DRUGS (1)
  1. DEXAMETHASONE SODIUM PHOSPHATE [Suspect]
     Active Substance: DEXAMETHASONE SODIUM PHOSPHATE
     Indication: Plasma cell myeloma
     Route: 065
     Dates: start: 20220505, end: 20230524

REACTIONS (1)
  - Femoral neck fracture [Recovering/Resolving]

NARRATIVE: CASE EVENT DATE: 20240730
